FAERS Safety Report 9536220 (Version 1)
Quarter: 2013Q2

REPORT INFORMATION
  Report Type: Spontaneous
  Country: US (occurrence: None)
  Receive Date: 20130507
  Receipt Date: 20130507
  Transmission Date: 20140414
  Serious: No
  Sender: FDA-Public Use
  Company Number: PHEH2012US025561

PATIENT
  Age: 62 Year
  Sex: Male

DRUGS (14)
  1. AFINITOR (RAD) [Suspect]
     Indication: RENAL CANCER
     Route: 048
  2. MELATONIN (MELATONIN) [Concomitant]
  3. VITAMIN C [Concomitant]
  4. MULTIPLE VITAMINS (ASCORBIN ACID, ERGOCALCIFEROL, FOLIC ACID, RETINOL, TOCOPHEROL, VITAMIN B NOS) [Concomitant]
  5. ASPIRIN (ACETYLSALICYCLIC ACID) [Concomitant]
  6. ALLOPURINOL (ALLOPURINOL) [Concomitant]
  7. CYMBALTA (DULOXETINE HYDROCHLORIDE) [Concomitant]
  8. AMBIEN (ZOLPIDEM TARTRATE) [Concomitant]
  9. ATIVAN (LORAZEPAM) [Concomitant]
  10. LOSARTAN POTASSIUM (LOSARTAN POTASSIUM) [Concomitant]
  11. OXYCODONE/APAP (OXYCODONE, PARACETAMOL) [Concomitant]
  12. DILAUDID (HYDROMORPHONE HYDROCHLORIDE) [Concomitant]
  13. PRILOSEC [Concomitant]
  14. METFORMIN (METFORMIN) [Concomitant]

REACTIONS (1)
  - Pneumonitis [None]
